FAERS Safety Report 24678838 (Version 5)
Quarter: 2024Q4

REPORT INFORMATION
  Report Type: Report from Study
  Country: PT (occurrence: PT)
  Receive Date: 20241129
  Receipt Date: 20241223
  Transmission Date: 20250114
  Serious: Yes (Hospitalization, Other)
  Sender: ABBVIE
  Company Number: PT-ABBVIE-6024802

PATIENT
  Age: 72 Year
  Sex: Male

DRUGS (9)
  1. CARBIDOPA\LEVODOPA [Suspect]
     Active Substance: CARBIDOPA\LEVODOPA
     Indication: Parkinson^s disease
     Dosage: 240 MG + 12 MG, FREQUENCY TEXT: LO: 1.6; HI: 0.78; BA: 0.75; LOW: 0.54; EXT: 0.3
     Route: 058
     Dates: start: 20241124
  2. CARBIDOPA\LEVODOPA [Suspect]
     Active Substance: CARBIDOPA\LEVODOPA
     Dosage: 240 MG + 12 MG, LAST DOSE ADMINISTERED: NOV 2024, FREQUENCY TEXT: LO: 1.6; HI: 0.75;  BA: 0.67; L...
     Route: 058
     Dates: start: 20241120
  3. CARBIDOPA\LEVODOPA [Suspect]
     Active Substance: CARBIDOPA\LEVODOPA
     Dosage: 240 MG + 12 MG, FREQUENCY TEXT: LO: 1.6; HI: 0.75; BA: 0.7; LOW: 0.5; EXT: 0.3
     Route: 058
     Dates: start: 20241122, end: 20241124
  4. ROPINIROLE [Concomitant]
     Active Substance: ROPINIROLE
     Indication: Product used for unknown indication
     Dosage: FIRST DOSE ADMINISTERED DATE: UNKNOWN
  5. ROPINIROLE [Concomitant]
     Active Substance: ROPINIROLE
     Indication: Product used for unknown indication
     Dosage: FIRST DOSE ADMINISTERED DATE: UNKNOWN.
  6. AMANTADINE HYDROCHLORIDE [Concomitant]
     Active Substance: AMANTADINE HYDROCHLORIDE
     Indication: Product used for unknown indication
     Dosage: FIRST DOSE ADMINISTERED: UNKNOWN
  7. ETHYL LOFLAZEPATE [Concomitant]
     Active Substance: ETHYL LOFLAZEPATE
     Indication: Product used for unknown indication
     Dosage: FIRST DOSE ADMINISTERED DATE: UNKNOWN.
  8. RIVOTRIL [Concomitant]
     Active Substance: CLONAZEPAM
     Indication: Product used for unknown indication
     Dosage: FIRST DOSE ADMINISTERED DATE: UNKNOWN.
  9. XADAGO [Concomitant]
     Active Substance: SAFINAMIDE MESYLATE
     Indication: Product used for unknown indication
     Dosage: FIRST DOSE ADMINISTERED DATE: UNKNOWN.

REACTIONS (7)
  - Pyrexia [Recovered/Resolved]
  - Freezing phenomenon [Recovering/Resolving]
  - On and off phenomenon [Recovering/Resolving]
  - Infusion site warmth [Recovering/Resolving]
  - Productive cough [Recovering/Resolving]
  - Infusion site erythema [Recovering/Resolving]
  - Infusion site swelling [Recovering/Resolving]

NARRATIVE: CASE EVENT DATE: 20241122
